FAERS Safety Report 4638160-X (Version None)
Quarter: 2005Q2

REPORT INFORMATION
  Report Type: 
  Country: None (occurrence: None)
  Receive Date: 20050418
  Receipt Date: 20050330
  Transmission Date: 20051028
  Serious: Yes (Other)
  Sender: FDA-Public Use
  Company Number: PHNU2005DE01482

PATIENT
  Age: 84 Year
  Sex: Male

DRUGS (6)
  1. ISOKET RETARD [Concomitant]
  2. ASPIRIN [Concomitant]
  3. DELIX [Suspect]
     Indication: HYPERTENSION
     Dosage: 2.5 MG DAILY
     Route: 048
     Dates: start: 20050223, end: 20050307
  4. ACTRAPHANE HM [Concomitant]
  5. LOCOL [Suspect]
     Indication: HYPERCHOLESTEROLAEMIA
     Dosage: 40 MG, QD
     Route: 048
     Dates: start: 20050223, end: 20050310
  6. ALLOPURINOL [Suspect]
     Indication: HYPERURICAEMIA
     Dosage: 300 MG DAILY
     Route: 048
     Dates: start: 20050223, end: 20050311

REACTIONS (1)
  - BLOOD CREATININE INCREASED [None]
